FAERS Safety Report 18139234 (Version 1)
Quarter: 2020Q3

REPORT INFORMATION
  Report Type: Report from Study
  Country: CA (occurrence: CA)
  Receive Date: 20200812
  Receipt Date: 20200812
  Transmission Date: 20201103
  Serious: Yes (Other)
  Sender: FDA-Public Use
  Company Number: CA-ACCORD-195170

PATIENT
  Age: 27 Year
  Sex: Female

DRUGS (3)
  1. VALPROIC ACID. [Suspect]
     Active Substance: VALPROIC ACID
     Indication: MIGRAINE
     Route: 065
  2. TOPIRAMATE. [Suspect]
     Active Substance: TOPIRAMATE
     Indication: MIGRAINE
     Route: 065
  3. AIMOVIG [Suspect]
     Active Substance: ERENUMAB-AOOE
     Indication: MIGRAINE
     Dosage: SUBCUTANEOUS SOLUTION, PREFILLED?AUTO?INJECTOR
     Route: 058

REACTIONS (4)
  - Drug ineffective [Unknown]
  - Contraindicated product administered [Unknown]
  - Hypotension [Unknown]
  - Nephrolithiasis [Unknown]
